FAERS Safety Report 23586042 (Version 1)
Quarter: 2024Q1

REPORT INFORMATION
  Report Type: Spontaneous
  Country: CN (occurrence: CN)
  Receive Date: 20240301
  Receipt Date: 20240301
  Transmission Date: 20240409
  Serious: Yes (Other)
  Sender: FDA-Public Use
  Company Number: CN-GE HEALTHCARE-2024CSU001781

PATIENT
  Age: 58 Year
  Sex: Male

DRUGS (8)
  1. VISIPAQUE [Suspect]
     Active Substance: IODIXANOL
     Indication: Angiogram cerebral
     Dosage: 90 ML, TOTAL
     Route: 013
  2. Nifedipine sustained release tablets (i) [Concomitant]
     Indication: Hypertension
     Dosage: UNK
     Route: 048
  3. ASPIRIN [Concomitant]
     Active Substance: ASPIRIN
     Indication: Coronary artery disease
     Dosage: UNK
     Route: 048
  4. ATORVASTATIN CALCIUM [Concomitant]
     Active Substance: ATORVASTATIN CALCIUM
     Indication: Coronary artery disease
     Dosage: UNK
     Route: 048
  5. CLOPIDOGREL BISULFATE [Concomitant]
     Active Substance: CLOPIDOGREL BISULFATE
     Indication: Anticoagulant therapy
     Dosage: 75 MG, QD
     Route: 048
  6. ASPIRIN [Concomitant]
     Active Substance: ASPIRIN
     Indication: Anticoagulant therapy
     Dosage: 100 MG, QD
     Route: 048
  7. Safflower extract and aceglutamide [Concomitant]
     Indication: Promotion of peripheral circulation
     Dosage: 20 ML, QD
     Route: 041
  8. OXIRACETAM [Concomitant]
     Active Substance: OXIRACETAM
     Indication: Promotion of peripheral circulation
     Dosage: 30 ML, QD
     Route: 041

REACTIONS (1)
  - Henoch-Schonlein purpura [Recovering/Resolving]
